FAERS Safety Report 6948699-X (Version None)
Quarter: 2010Q3

REPORT INFORMATION
  Report Type: 
  Country: None (occurrence: None)
  Receive Date: 20100828
  Receipt Date: 20091106
  Transmission Date: 20110219
  Serious: No
  Sender: FDA-Public Use
  Company Number: US-ABBOTT-09P-163-0607996-00

PATIENT
  Sex: Male
  Weight: 83.082 kg

DRUGS (4)
  1. NIASPAN [Suspect]
     Indication: BLOOD CHOLESTEROL INCREASED
     Dates: start: 20091106, end: 20091106
  2. ASPIRIN [Concomitant]
     Indication: ADVERSE REACTION
     Dosage: 30 MINUETS PRIOR TO NIASPAN
     Dates: start: 20091106, end: 20091106
  3. ASPIRIN [Concomitant]
     Indication: PROPHYLAXIS
  4. NEXIUM [Concomitant]
     Indication: GASTROOESOPHAGEAL REFLUX DISEASE
     Dosage: UNKNOWN

REACTIONS (1)
  - FLUSHING [None]
